FAERS Safety Report 4597596-6 (Version None)
Quarter: 2005Q1

REPORT INFORMATION
  Report Type: 
  Country: None (occurrence: None)
  Receive Date: 20050228
  Receipt Date: 20050228
  Transmission Date: 20050727
  Serious: No
  Sender: FDA-Public Use
  Company Number: None

PATIENT
  Age: 42 Year
  Sex: Male
  Weight: 107.0489 kg

DRUGS (8)
  1. DEPODUR [Suspect]
     Indication: PAIN
     Dosage: 15 MG ONCE EPIDRUAL
     Route: 008
     Dates: start: 20050209, end: 20050209
  2. NORCO [Concomitant]
  3. TYLENOL (CAPLET) [Concomitant]
  4. KEFZOL [Concomitant]
  5. MILK OF MAGNESIA [Concomitant]
  6. ZIAC [Concomitant]
  7. SURFAK [Concomitant]
  8. ALLEGRA [Concomitant]

REACTIONS (1)
  - BODY TEMPERATURE INCREASED [None]
